FAERS Safety Report 15147211 (Version 1)
Quarter: 2018Q3

REPORT INFORMATION
  Report Type: Spontaneous
  Country: GB (occurrence: GB)
  Receive Date: 20180716
  Receipt Date: 20180716
  Transmission Date: 20181010
  Serious: Yes (Other)
  Sender: FDA-Public Use
  Company Number: GB-TEVA-2018-GB-926628

PATIENT
  Age: 64 Year
  Sex: Female

DRUGS (1)
  1. CO?AMOXICLAV [Suspect]
     Active Substance: AMOXICILLIN\CLAVULANATE POTASSIUM
     Dosage: FIRST STAT DOSE
     Route: 042

REACTIONS (3)
  - Feeling abnormal [Unknown]
  - Cardiac arrest [Unknown]
  - Paraesthesia [Unknown]
